FAERS Safety Report 5332753-2 (Version None)
Quarter: 2007Q2

REPORT INFORMATION
  Report Type: 
  Country: None (occurrence: None)
  Receive Date: 20070518
  Receipt Date: 20070510
  Transmission Date: 20071010
  Serious: Yes (Life-Threatening, Hospitalization)
  Sender: FDA-Public Use
  Company Number: 2007SP009185

PATIENT
  Age: 68 Year
  Sex: Female

DRUGS (4)
  1. VIRAFERONPEG [Suspect]
     Indication: HEPATITIS C
     Dosage: 2 DF; SC
     Route: 058
     Dates: start: 20070108, end: 20070206
  2. COPEGUS [Suspect]
     Indication: HEPATITIS C
  3. PROZAC [Concomitant]
  4. NEXIUM [Concomitant]

REACTIONS (5)
  - ACUTE RESPIRATORY DISTRESS SYNDROME [None]
  - ALVEOLITIS ALLERGIC [None]
  - CRYPTOGENIC ORGANISING PNEUMONIA [None]
  - DEPRESSION [None]
  - LUNG DISORDER [None]
